FAERS Safety Report 25290525 (Version 5)
Quarter: 2025Q2

REPORT INFORMATION
  Report Type: Spontaneous
  Country: US (occurrence: US)
  Receive Date: 20250510
  Receipt Date: 20250630
  Transmission Date: 20250717
  Serious: Yes (Other)
  Sender: ELI LILLY AND COMPANY
  Company Number: US-ELI_LILLY_AND_COMPANY-US202505006660

PATIENT
  Age: 61 Year
  Sex: Female

DRUGS (4)
  1. VERZENIO [Suspect]
     Active Substance: ABEMACICLIB
     Indication: Breast cancer female
     Dosage: 100 MG, BID
     Route: 048
     Dates: start: 20250327, end: 20250403
  2. VERZENIO [Suspect]
     Active Substance: ABEMACICLIB
     Dosage: 50 MG, BID
     Route: 048
     Dates: start: 20250505, end: 20250507
  3. VERZENIO [Suspect]
     Active Substance: ABEMACICLIB
     Dosage: 50 MG, BID
     Route: 048
     Dates: end: 20250616
  4. EXEMESTANE [Concomitant]
     Active Substance: EXEMESTANE
     Indication: Aromatase inhibition therapy

REACTIONS (18)
  - Diverticulitis [Unknown]
  - Abdominal distension [Unknown]
  - Arthritis [Not Recovered/Not Resolved]
  - Oral mucosal blistering [Not Recovered/Not Resolved]
  - Taste disorder [Unknown]
  - Inappropriate schedule of product administration [Unknown]
  - Gastrooesophageal reflux disease [Unknown]
  - Influenza [Recovering/Resolving]
  - Nasopharyngitis [Recovered/Resolved]
  - Mouth ulceration [Unknown]
  - Stomatitis [Not Recovered/Not Resolved]
  - Fatigue [Unknown]
  - Nausea [Unknown]
  - Decreased appetite [Unknown]
  - Dyspepsia [Recovering/Resolving]
  - Dysgeusia [Unknown]
  - Vomiting [Recovering/Resolving]
  - Headache [Unknown]

NARRATIVE: CASE EVENT DATE: 20250327
